FAERS Safety Report 6445716-0 (Version None)
Quarter: 2009Q4

REPORT INFORMATION
  Report Type: 
  Country: None (occurrence: None)
  Receive Date: 20091118
  Receipt Date: 20091118
  Transmission Date: 20100525
  Serious: No
  Sender: FDA-Public Use
  Company Number: None

PATIENT
  Age: 64 Year
  Sex: Female
  Weight: 63.5036 kg

DRUGS (1)
  1. VESICARE [Suspect]
     Indication: URINARY INCONTINENCE
     Dosage: 5MG ONCE A DAY
     Dates: start: 20090701, end: 20091001

REACTIONS (1)
  - VISION BLURRED [None]
